FAERS Safety Report 4269700-0 (Version None)
Quarter: 2004Q1

REPORT INFORMATION
  Report Type: 
  Country: None (occurrence: None)
  Receive Date: 20040112
  Receipt Date: 20040105
  Transmission Date: 20041129
  Serious: Yes (Other)
  Sender: FDA-Public Use
  Company Number: 200314747FR

PATIENT
  Age: 53 Year
  Sex: Male
  Weight: 80 kg

DRUGS (3)
  1. LANTUS [Suspect]
     Indication: DIABETES MELLITUS
     Dosage: SC
     Route: 058
     Dates: start: 20030101, end: 20030101
  2. AMOXICILLIN AND CLAVULANATE POTASSIUM [Suspect]
     Indication: ERYSIPELAS
     Dosage: PO
     Route: 048
     Dates: start: 20030101, end: 20030101
  3. SINTROM [Concomitant]

REACTIONS (2)
  - ERYTHEMA [None]
  - TOXIC EPIDERMAL NECROLYSIS [None]
